FAERS Safety Report 5464942-0 (Version None)
Quarter: 2007Q3

REPORT INFORMATION
  Report Type: 
  Country: None (occurrence: None)
  Receive Date: 20070921
  Receipt Date: 20070912
  Transmission Date: 20080115
  Serious: Yes (Hospitalization)
  Sender: FDA-Public Use
  Company Number: JP-PFIZER INC-2007076777

PATIENT
  Sex: Female
  Weight: 59.9 kg

DRUGS (34)
  1. ATORVASTATIN CALCIUM [Suspect]
  2. REMICADE [Suspect]
     Indication: RHEUMATOID ARTHRITIS
     Dosage: DAILY DOSE:3MG/KG
     Route: 042
     Dates: start: 20041007
  3. REMICADE [Suspect]
     Dosage: DAILY DOSE:3MG/KG
     Dates: start: 20041021
  4. REMICADE [Suspect]
     Dosage: DAILY DOSE:3MG/KG
     Dates: start: 20041118
  5. RHEUMATREX [Suspect]
  6. RIMATIL [Suspect]
  7. MOBIC [Suspect]
  8. MUCOSTA [Suspect]
  9. BAYLOTENSIN [Concomitant]
  10. ADALAT [Concomitant]
  11. ALL OTHER THERAPEUTIC PRODUCTS [Concomitant]
  12. CATAPRES [Concomitant]
  13. GLIMICRON [Concomitant]
  14. BASEN [Concomitant]
  15. METHYCOBAL [Concomitant]
  16. PREDNISOLONE [Concomitant]
     Dosage: DAILY DOSE:5MG
     Route: 048
     Dates: start: 19920919, end: 20041118
  17. PREDNISOLONE [Concomitant]
  18. PREDNISOLONE [Concomitant]
  19. PREDNISOLONE [Concomitant]
  20. PREDNISOLONE [Concomitant]
  21. PREDNISOLONE [Concomitant]
  22. PREDNISOLONE [Concomitant]
  23. PREDNISOLONE [Concomitant]
  24. PREDNISOLONE [Concomitant]
  25. LOSARTAN POTASSIUM [Concomitant]
     Route: 048
  26. INSULIN [Concomitant]
     Route: 048
  27. FAMOTIDINE [Concomitant]
  28. FUNGIZONE [Concomitant]
  29. ISODINE [Concomitant]
  30. DIART [Concomitant]
  31. CLARITHROMYCIN [Concomitant]
  32. KETOPROFEN [Concomitant]
  33. SIMVASTATIN [Concomitant]
  34. URSO 250 [Concomitant]

REACTIONS (3)
  - GINGIVITIS [None]
  - PNEUMOCYSTIS JIROVECI INFECTION [None]
  - PNEUMONIA CYTOMEGALOVIRAL [None]
